FAERS Safety Report 8209061-5 (Version None)
Quarter: 2012Q1

REPORT INFORMATION
  Report Type: 
  Country: None (occurrence: None)
  Receive Date: 20120314
  Receipt Date: 20120308
  Transmission Date: 20120608
  Serious: Yes (Hospitalization)
  Sender: FDA-Public Use
  Company Number: AR-ABBOTT-12P-007-0912116-00

PATIENT
  Age: 45 Year
  Sex: Male

DRUGS (4)
  1. HUMIRA [Suspect]
     Indication: ERYTHRODERMIC PSORIASIS
     Route: 058
     Dates: start: 20111001, end: 20120301
  2. METHOTREXATE [Concomitant]
     Indication: PSORIATIC ARTHROPATHY
     Route: 065
  3. HUMIRA [Suspect]
     Indication: PSORIATIC ARTHROPATHY
  4. METHOTREXATE [Concomitant]
     Indication: PSORIASIS

REACTIONS (9)
  - MUSCULAR WEAKNESS [None]
  - PARAPARESIS [None]
  - SENSORIMOTOR DISORDER [None]
  - EXTENSOR PLANTAR RESPONSE [None]
  - MYELITIS TRANSVERSE [None]
  - HYPOAESTHESIA [None]
  - REFLEXES ABNORMAL [None]
  - ANAL SPHINCTER ATONY [None]
  - PYREXIA [None]
